FAERS Safety Report 17721848 (Version 1)
Quarter: 2020Q2

REPORT INFORMATION
  Report Type: Spontaneous
  Country: CN (occurrence: CN)
  Receive Date: 20200429
  Receipt Date: 20200429
  Transmission Date: 20200714
  Serious: Yes (Hospitalization)
  Sender: FDA-Public Use
  Company Number: CN-BAXTER-2020BAX009072

PATIENT
  Age: 55 Year
  Sex: Female
  Weight: 61 kg

DRUGS (5)
  1. ENDOXAN [Suspect]
     Active Substance: CYCLOPHOSPHAMIDE
     Indication: BREAST CANCER
     Dosage: DAY 1, CYCLOPHOSPHAMIDE + 0.9 % SODIUM CHLORIDE 100 ML
     Route: 041
     Dates: start: 20200403, end: 20200403
  2. RECOMBINANT HUMAN GRANULOCYTE STIMULATING FACTOR [Concomitant]
     Indication: PROPHYLAXIS
     Dosage: 3 VIALS
     Route: 058
     Dates: start: 202004
  3. 5% GLUCOSE  INJECTION [Suspect]
     Active Substance: DEXTROSE
     Indication: MEDICATION DILUTION
     Dosage: DAY 1, PIRARUBICIN HYDROCHLORIDE 90 MG + 5 % GLUCOSE
     Route: 041
     Dates: start: 20200403, end: 20200403
  4. PIRARUBICIN HYDROCHLORIDE [Suspect]
     Active Substance: PIRARUBICIN HYDROCHLORIDE
     Indication: BREAST CANCER
     Dosage: DAY 1, PIRARUBICN HYDROCHLORIDE + 5 % GLUCOSE 100 ML
     Route: 041
     Dates: start: 20200403, end: 20200403
  5. 0.9% SODIUM CHLORIDE INJECTION [Suspect]
     Active Substance: SODIUM CHLORIDE
     Indication: MEDICATION DILUTION
     Dosage: DAY 1, CYCLOPHOSPHAMIDE 900 MG + 0.9 % SODIUM CHLORIDE
     Route: 041
     Dates: start: 20200403, end: 20200403

REACTIONS (1)
  - Bone marrow failure [Recovering/Resolving]

NARRATIVE: CASE EVENT DATE: 20200411
